FAERS Safety Report 20175591 (Version 1)
Quarter: 2021Q4

REPORT INFORMATION
  Report Type: Spontaneous
  Country: US (occurrence: None)
  Receive Date: 20211209
  Receipt Date: 20211209
  Transmission Date: 20220303
  Serious: Yes (Hospitalization)
  Sender: FDA-Public Use
  Company Number: None

PATIENT
  Age: 48 Year
  Sex: Male
  Weight: 77.1 kg

DRUGS (2)
  1. JARDIANCE [Suspect]
     Active Substance: EMPAGLIFLOZIN
     Indication: Type 2 diabetes mellitus
     Dosage: OTHER FREQUENCY : EVERY MORNING;?
     Route: 048
     Dates: end: 20211208
  2. JARDIANCE [Concomitant]
     Active Substance: EMPAGLIFLOZIN
     Dates: end: 20211208

REACTIONS (4)
  - Metabolic acidosis [None]
  - SARS-CoV-2 test positive [None]
  - Euglycaemic diabetic ketoacidosis [None]
  - Blood pressure increased [None]

NARRATIVE: CASE EVENT DATE: 20211208
